FAERS Safety Report 22211787 (Version 2)
Quarter: 2023Q2

REPORT INFORMATION
  Report Type: Spontaneous
  Country: FR (occurrence: FR)
  Receive Date: 20230414
  Receipt Date: 20230614
  Transmission Date: 20230721
  Serious: Yes (Hospitalization, Other)
  Sender: FDA-Public Use
  Company Number: FR-AMERICAN REGENT INC-2023000875

PATIENT
  Age: 25 Year
  Sex: Female
  Weight: 49 kg

DRUGS (1)
  1. FERINJECT [Suspect]
     Active Substance: FERRIC CARBOXYMALTOSE
     Indication: Product used for unknown indication
     Dosage: UNK
     Dates: start: 20230102, end: 20230114

REACTIONS (5)
  - Umbilical cord abnormality [Unknown]
  - Placental disorder [Unknown]
  - Maternal exposure during pregnancy [Recovered/Resolved]
  - Abnormal cord insertion [Unknown]
  - Amniotic cavity infection [Unknown]

NARRATIVE: CASE EVENT DATE: 20230101
